FAERS Safety Report 7093986-0 (Version None)
Quarter: 2010Q4

REPORT INFORMATION
  Report Type: 
  Country: None (occurrence: None)
  Receive Date: 20101110
  Receipt Date: 20101101
  Transmission Date: 20110411
  Serious: Yes (Death, Hospitalization, Other)
  Sender: FDA-Public Use
  Company Number: US-PFIZER INC-2010139053

PATIENT
  Sex: Female
  Weight: 136 kg

DRUGS (3)
  1. LIPITOR [Suspect]
     Indication: BLOOD CHOLESTEROL INCREASED
     Dosage: 20 MG, DAILY
     Route: 048
  2. ZOLOFT [Suspect]
     Indication: DEPRESSION
     Dosage: 50 MG, 3X/DAY
     Route: 048
  3. LANTUS [Concomitant]
     Dosage: UNK

REACTIONS (7)
  - DEATH [None]
  - HEPATIC FUNCTION ABNORMAL [None]
  - MOVEMENT DISORDER [None]
  - OEDEMA [None]
  - OPEN WOUND [None]
  - RENAL IMPAIRMENT [None]
  - WOUND INFECTION [None]
